FAERS Safety Report 8396663 (Version 4)
Quarter: 2012Q4

REPORT INFORMATION
  Report Type: 
  Country: US (occurrence: US)
  Receive Date: 20120208
  Receipt Date: 20120912
  Transmission Date: 20130627
  Serious: Yes (Other)
  Sender: FDA-Public Use
  Company Number: PHEH2012US003151

PATIENT
  Age: 86 Year
  Sex: Female
  Weight: 81.63 kg

DRUGS (17)
  1. EXJADE [Suspect]
     Indication: HAEMOCHROMATOSIS
     Dosage: 9.5 mg/kg/day (250 mg, TID)
     Route: 048
     Dates: start: 20120601
  2. EXJADE [Suspect]
     Indication: MYELODYSPLASTIC SYNDROME
     Dosage: 3. mg/kg/day (250 mg, QD)
     Route: 048
  3. VIDAZA [Suspect]
     Dates: start: 201102
  4. AZACITIDINE [Suspect]
     Dosage: 137 mg
     Route: 042
  5. RED BLOOD CELLS, CONCENTRATED [Concomitant]
  6. ALLOPURINOL [Concomitant]
     Dosage: 100 mg, daily
     Route: 048
  7. AMLODIPINE BESYLATE [Concomitant]
     Dosage: 5 mg, daily
     Route: 048
  8. DEXAMETHASONE [Concomitant]
     Dosage: 4 mg, 2 tabs 1 hour before each vidaza treatment
     Route: 048
  9. DIPHENHYDRAMINE HYDROCHLORIDE [Concomitant]
  10. FOLIC ACID [Concomitant]
     Dosage: 1 mg,daily
     Route: 048
  11. WYDASE [Concomitant]
  12. HYDROCODONE W/ACETAMINOPHEN [Concomitant]
     Indication: PAIN
     Dosage: 5 mg-500 mg, take 2,Q4-6H PRN
  13. LASIX [Concomitant]
     Dosage: 40 mg, daily
     Route: 048
  14. LOMOTIL [Concomitant]
     Indication: DIARRHOEA
     Dosage: 2.5 mg-0.25 mg,QID PRN
     Route: 048
  15. METOPROLOL TARTRATE [Concomitant]
     Dosage: 50 mg, BID
     Route: 048
  16. TYLENOL [Concomitant]
     Dosage: 500 mg, take 2 as directed
     Route: 048
  17. ZOLOFT [Concomitant]
     Dosage: 500 mg, daily
     Route: 048

REACTIONS (21)
  - Hypoxia [Unknown]
  - Pneumonitis [Not Recovered/Not Resolved]
  - Interstitial lung disease [Unknown]
  - Atelectasis [Unknown]
  - Lumbar spinal stenosis [Unknown]
  - Spinal osteoarthritis [Unknown]
  - Aortic disorder [Unknown]
  - Anaemia [Unknown]
  - Haemoglobin decreased [Unknown]
  - Lung disorder [Unknown]
  - Diarrhoea [Unknown]
  - Dyspnoea [Not Recovered/Not Resolved]
  - Feeling abnormal [Unknown]
  - Fatigue [Unknown]
  - Pain [Unknown]
  - Arthritis [Unknown]
  - Blood glucose increased [Unknown]
  - Granulocytes abnormal [Unknown]
  - Lymphocyte percentage decreased [Unknown]
  - Globulins increased [Unknown]
  - Protein total decreased [Unknown]
